FAERS Safety Report 6819449-2 (Version None)
Quarter: 2010Q3

REPORT INFORMATION
  Report Type: 
  Country: None (occurrence: None)
  Receive Date: 20100707
  Receipt Date: 20100629
  Transmission Date: 20110219
  Serious: Yes (Other)
  Sender: FDA-Public Use
  Company Number: JP-ASTRAZENECA-2010SE28081

PATIENT
  Age: 34 Year
  Sex: Female
  Weight: 40 kg

DRUGS (7)
  1. SYMBICORT [Suspect]
     Indication: COUGH
     Dosage: DOSE UNKNOWN
     Route: 055
     Dates: start: 20100601
  2. SYMBICORT [Suspect]
     Route: 055
     Dates: start: 20100601
  3. EPHEDRA TEAS [Concomitant]
     Dosage: DOSE UNKNOWN
     Route: 048
  4. ASUTOPUTIN [Concomitant]
     Route: 048
  5. CRAVIT [Concomitant]
     Route: 048
     Dates: start: 20100612
  6. SISAAL [Concomitant]
     Route: 048
     Dates: start: 20100612
  7. MUCOTRON [Concomitant]
     Route: 048
     Dates: start: 20100612

REACTIONS (4)
  - DYSPNOEA [None]
  - FEELING COLD [None]
  - PALPITATIONS [None]
  - RASH [None]
